FAERS Safety Report 25419975 (Version 5)
Quarter: 2025Q3

REPORT INFORMATION
  Report Type: Spontaneous
  Country: US (occurrence: US)
  Receive Date: 20250610
  Receipt Date: 20250704
  Transmission Date: 20251021
  Serious: No
  Sender: SANOFI AVENTIS
  Company Number: US-SA-2025SA163587

PATIENT
  Age: 2 Year
  Sex: Male

DRUGS (1)
  1. DUPIXENT [Suspect]
     Active Substance: DUPILUMAB
     Indication: Dermatitis atopic
     Dosage: 200 MG, Q4W
     Route: 058
     Dates: start: 20250606

REACTIONS (6)
  - Skin injury [Unknown]
  - Device breakage [Unknown]
  - Keratosis pilaris [Unknown]
  - Rash [Unknown]
  - Dry eye [Unknown]
  - Excessive eye blinking [Unknown]

NARRATIVE: CASE EVENT DATE: 20250601
